FAERS Safety Report 5732248-8 (Version None)
Quarter: 2008Q2

REPORT INFORMATION
  Report Type: 
  Country: None (occurrence: None)
  Receive Date: 20080508
  Receipt Date: 20080416
  Transmission Date: 20081010
  Serious: No
  Sender: FDA-Public Use
  Company Number: US-BOEHRINGER INGELHEIM GMBH, GERMANY-2008-BP-06127BP

PATIENT
  Age: 69 Year
  Sex: Female
  Weight: 78 kg

DRUGS (3)
  1. AGGRENOX [Suspect]
     Dates: start: 20080220
  2. LISINOPRIL [Concomitant]
     Route: 048
     Dates: start: 20080220
  3. METFORMIN HCL [Concomitant]
     Route: 048
     Dates: start: 20080220

REACTIONS (1)
  - NAUSEA [None]
